FAERS Safety Report 8743223 (Version 2)
Quarter: 2012Q4

REPORT INFORMATION
  Report Type: 
  Country: US (occurrence: US)
  Receive Date: 20120824
  Receipt Date: 20120924
  Transmission Date: 20130627
  Serious: Yes (Congenital Anomaly)
  Sender: FDA-Public Use
  Company Number: US-GLAXOSMITHKLINE-A0990796A

PATIENT
  Age: 0 Year
  Sex: Male
  Weight: 3.5 kg

DRUGS (1)
  1. PAXIL CR [Suspect]
     Indication: BIPOLAR DISORDER
     Route: 064

REACTIONS (3)
  - Cleft lip [Unknown]
  - Nose deformity [Unknown]
  - Foetal exposure during pregnancy [Unknown]
